FAERS Safety Report 20906872 (Version 7)
Quarter: 2022Q4

REPORT INFORMATION
  Report Type: Spontaneous
  Country: US (occurrence: US)
  Receive Date: 20220602
  Receipt Date: 20221021
  Transmission Date: 20230113
  Serious: Yes (Other)
  Sender: FDA-Public Use
  Company Number: US-BAYER-2022A075076

PATIENT
  Age: 34 Year
  Sex: Male

DRUGS (8)
  1. KOGENATE FS [Suspect]
     Active Substance: ANTIHEMOPHILIC FACTOR, HUMAN RECOMBINANT
     Dosage: 1750 DF
     Route: 042
  2. KOGENATE FS [Suspect]
     Active Substance: ANTIHEMOPHILIC FACTOR, HUMAN RECOMBINANT
     Dosage: 1750 DF
     Route: 042
     Dates: start: 20220525, end: 20220525
  3. KOGENATE FS [Suspect]
     Active Substance: ANTIHEMOPHILIC FACTOR, HUMAN RECOMBINANT
     Dosage: UNK, FOR THE LEFT ANKLE INJURY AND BLEED TREATMENT
     Dates: start: 20220706, end: 20220706
  4. KOGENATE FS [Suspect]
     Active Substance: ANTIHEMOPHILIC FACTOR, HUMAN RECOMBINANT
     Dosage: UNK, FOR THE LEFT ANKLE INJURY AND BLEED TREATMENT
     Dates: start: 20220707, end: 20220707
  5. KOGENATE FS [Suspect]
     Active Substance: ANTIHEMOPHILIC FACTOR, HUMAN RECOMBINANT
     Dosage: UNK, FOR THE LEFT ANKLE INJURY AND BLEED TREATMENT
     Dates: start: 20220708, end: 20220708
  6. KOGENATE FS [Suspect]
     Active Substance: ANTIHEMOPHILIC FACTOR, HUMAN RECOMBINANT
     Dosage: UNK
     Dates: start: 20220824, end: 20220902
  7. JIVI [Suspect]
     Active Substance: DAMOCTOCOG ALFA PEGOL
     Dosage: UNK
  8. JIVI [Suspect]
     Active Substance: DAMOCTOCOG ALFA PEGOL
     Dosage: UNK (EXTRA DOSES INFUSED)

REACTIONS (6)
  - Haemarthrosis [Recovered/Resolved]
  - Haemarthrosis [None]
  - Arthralgia [None]
  - Arthralgia [Not Recovered/Not Resolved]
  - Chondropathy [None]
  - Gait inability [None]

NARRATIVE: CASE EVENT DATE: 20220522
